FAERS Safety Report 23596781 (Version 1)
Quarter: 2024Q1

REPORT INFORMATION
  Report Type: Spontaneous
  Country: US (occurrence: US)
  Receive Date: 20240305
  Receipt Date: 20240305
  Transmission Date: 20240410
  Serious: Yes (Other)
  Sender: FDA-Public Use
  Company Number: US-PFIZER INC-PV202400030279

PATIENT
  Age: 41 Year
  Sex: Female

DRUGS (1)
  1. NURTEC ODT [Suspect]
     Active Substance: RIMEGEPANT SULFATE
     Indication: Migraine
     Dosage: TAKE 1 TABLET DAILY AS NEEDED
     Route: 048

REACTIONS (3)
  - Relapsing-remitting multiple sclerosis [Unknown]
  - Headache [Unknown]
  - Migraine [Unknown]
